FAERS Safety Report 9074978 (Version 1)
Quarter: 2013Q1

REPORT INFORMATION
  Report Type: Spontaneous
  Country: US (occurrence: US)
  Receive Date: 20130128
  Receipt Date: 20130128
  Transmission Date: 20140127
  Serious: No
  Sender: FDA-Public Use
  Company Number: US-GLAXOSMITHKLINE-A0965269A

PATIENT
  Age: 49 Year
  Sex: Male

DRUGS (9)
  1. MEPRON [Suspect]
     Indication: BABESIOSIS
     Dosage: 750MG TWICE PER DAY
     Route: 048
     Dates: start: 20120131
  2. VIVELLE-DOT [Concomitant]
  3. AZITHROMYCIN [Concomitant]
  4. VITAMIN D [Concomitant]
  5. CALCIUM [Concomitant]
  6. VITAMIN E [Concomitant]
  7. VITAMIN B COMPLEX [Concomitant]
  8. VITAMIN B12 [Concomitant]
  9. BIOTIN [Concomitant]

REACTIONS (1)
  - Alopecia [Not Recovered/Not Resolved]
